FAERS Safety Report 8518368 (Version 7)
Quarter: 2014Q2

REPORT INFORMATION
  Report Type: Spontaneous
  Country: US (occurrence: US)
  Receive Date: 20120417
  Receipt Date: 20140606
  Transmission Date: 20141212
  Serious: Yes (Hospitalization)
  Sender: FDA-Public Use
  Company Number: US-ASTRAZENECA-2011SE58360

PATIENT
  Age: 42 Year
  Sex: Female

DRUGS (26)
  1. NEXIUM [Suspect]
     Indication: GASTROOESOPHAGEAL REFLUX DISEASE
     Route: 048
     Dates: start: 1990, end: 2000
  2. NEXIUM [Suspect]
     Indication: GASTROOESOPHAGEAL REFLUX DISEASE
     Route: 048
     Dates: start: 2000, end: 2010
  3. NEXIUM [Suspect]
     Indication: GASTROOESOPHAGEAL REFLUX DISEASE
     Route: 048
     Dates: start: 20030923
  4. NEXIUM [Suspect]
     Indication: GASTROOESOPHAGEAL REFLUX DISEASE
     Route: 048
     Dates: start: 20070824
  5. NEXIUM [Suspect]
     Indication: GASTROOESOPHAGEAL REFLUX DISEASE
     Route: 048
     Dates: start: 20080215
  6. TRICOR [Concomitant]
     Indication: BLOOD CHOLESTEROL
     Route: 048
     Dates: start: 20080624
  7. RAMIPRIL [Concomitant]
     Indication: HYPERTENSION
     Route: 048
     Dates: start: 20090714
  8. LOVAZA [Concomitant]
     Indication: BLOOD CHOLESTEROL
     Route: 048
  9. BABY ASPIRIN [Concomitant]
     Dates: start: 20080624
  10. NORVASC/AMLODIPINE BESYLATE [Concomitant]
     Indication: HYPERTENSION
     Route: 048
     Dates: start: 20071002
  11. NORVASC/AMLODIPINE BESYLATE [Concomitant]
     Indication: HYPERTENSION
     Dates: start: 20070925
  12. PERCOCET [Concomitant]
     Indication: PAIN
     Dosage: 1-2 PILLS EVERY 4-6 HOURS
     Dates: start: 200802
  13. PERCOCET [Concomitant]
     Indication: PAIN
     Dosage: 5/325 MG, 2 TABS PO Q4H PRN
     Route: 048
     Dates: start: 200802
  14. KLONOPIN [Concomitant]
     Indication: ANXIETY
     Route: 048
     Dates: start: 20070914
  15. KLONOPIN [Concomitant]
     Indication: ANXIETY
     Route: 048
     Dates: start: 20110818
  16. BENADRYL [Concomitant]
  17. VISTARIL [Concomitant]
  18. TRILEPTAL [Concomitant]
     Route: 048
     Dates: start: 20070820
  19. LEVOTHYROXINE/SYNTHROID [Concomitant]
     Indication: THYROID DISORDER
     Dates: start: 20080624
  20. ZANTAC [Concomitant]
  21. DOAUSELLI [Concomitant]
     Dates: start: 20031111
  22. TEGRETOL [Concomitant]
     Dates: start: 20031111
  23. MOTRIN [Concomitant]
     Dates: start: 20070925
  24. THYROID [Concomitant]
     Dates: start: 20031111
  25. CALCIUM [Concomitant]
     Route: 048
  26. VITAMINS WITH IRON [Concomitant]
     Route: 048

REACTIONS (8)
  - Ankle fracture [Unknown]
  - Fall [Unknown]
  - Osteoporosis [Unknown]
  - Bone disorder [Unknown]
  - Arthritis [Unknown]
  - Emotional distress [Unknown]
  - Tibia fracture [Unknown]
  - Depression [Unknown]
